FAERS Safety Report 24969786 (Version 1)
Quarter: 2025Q1

REPORT INFORMATION
  Report Type: Spontaneous
  Country: US (occurrence: None)
  Receive Date: 20250213
  Receipt Date: 20250213
  Transmission Date: 20250408
  Serious: No
  Sender: FDA-CTU
  Company Number: None

PATIENT
  Sex: Male

DRUGS (2)
  1. SPRAVATO [Suspect]
     Active Substance: ESKETAMINE
     Indication: Depression
     Dosage: FREQUENCY : WEEKLY;?OTHER ROUTE : INTRANASALLY;?
     Route: 050
     Dates: start: 202412
  2. XOLAIR PFS [Concomitant]
     Active Substance: OMALIZUMAB

REACTIONS (2)
  - Chest pain [None]
  - Panic attack [None]
